FAERS Safety Report 7389014-X (Version None)
Quarter: 2011Q2

REPORT INFORMATION
  Report Type: 
  Country: None (occurrence: None)
  Receive Date: 20110401
  Receipt Date: 20110329
  Transmission Date: 20111010
  Serious: Yes (Death, Life-Threatening)
  Sender: FDA-Public Use
  Company Number: DE-PFIZER INC-2011050040

PATIENT
  Age: 52 Year
  Sex: Female
  Weight: 89 kg

DRUGS (9)
  1. ETOPOSIDE [Suspect]
     Indication: ACUTE MYELOID LEUKAEMIA
     Dosage: 180 MG, CYCLIC DAY 1-3
     Dates: start: 20110223, end: 20110225
  2. POSACONAZOLE [Concomitant]
     Dosage: 300 MG, 2X/DAY
     Route: 042
     Dates: start: 20110301, end: 20110302
  3. POSACONAZOLE [Concomitant]
     Dosage: 300 MG, 1X/DAY
     Dates: start: 20110302
  4. MSI [Concomitant]
     Dosage: UNK
     Route: 042
     Dates: start: 20110304
  5. TRETINOIN [Suspect]
     Dosage: 80 MG, CYCLIC DAY 9-2
     Dates: start: 20110228
  6. GEMTUZUMAB OZOGAMICIN [Suspect]
     Indication: ACUTE MYELOID LEUKAEMIA
     Dosage: 5.4 MG, CYCLIC DAY 1
     Dates: start: 20110223, end: 20110223
  7. ZAVEDOS [Suspect]
     Indication: ACUTE MYELOID LEUKAEMIA
     Dosage: 22 MG, CYCLIC DAY 1, 3, 5
     Dates: start: 20110223, end: 20110227
  8. CYTARABINE [Suspect]
     Indication: ACUTE MYELOID LEUKAEMIA
     Dosage: 180 MG, CYCLIC DAY 1-7
     Dates: start: 20110223, end: 20110301
  9. TRETINOIN [Suspect]
     Indication: ACUTE MYELOID LEUKAEMIA
     Dosage: 80 MG, CYCLIC DAY 6-8
     Dates: start: 20110228

REACTIONS (1)
  - SEPSIS [None]
